FAERS Safety Report 4940827-0 (Version None)
Quarter: 2006Q1

REPORT INFORMATION
  Report Type: 
  Country: None (occurrence: None)
  Receive Date: 20060307
  Receipt Date: 20060224
  Transmission Date: 20060701
  Serious: Yes (Congenital Anomaly, Other)
  Sender: FDA-Public Use
  Company Number: FR-2005-006030

PATIENT
  Age: 37 Year
  Sex: Female
  Weight: 68 kg

DRUGS (1)
  1. MIRENA [Suspect]
     Indication: CONTRACEPTION
     Dosage: 20 U G/DAY, CONT, INTRA-UTERINE
     Route: 015
     Dates: start: 20010521, end: 20050504

REACTIONS (11)
  - CAUDAL REGRESSION SYNDROME [None]
  - CONGENITAL ANOMALY [None]
  - CONGENITAL AORTIC STENOSIS [None]
  - DRUG EXPOSURE DURING PREGNANCY [None]
  - EAR DISORDER [None]
  - HYPERTELORISM OF ORBIT [None]
  - INTRA-UTERINE DEATH [None]
  - NASAL DISORDER [None]
  - PREGNANCY WITH CONTRACEPTIVE DEVICE [None]
  - SINGLE UMBILICAL ARTERY [None]
  - SPINA BIFIDA [None]
